FAERS Safety Report 8528434 (Version 5)
Quarter: 2012Q4

REPORT INFORMATION
  Report Type: 
  Country: IE (occurrence: IE)
  Receive Date: 20120424
  Receipt Date: 20121220
  Transmission Date: 20130627
  Serious: Yes (Other)
  Sender: FDA-Public Use
  Company Number: IE-BAYER-2012-037748

PATIENT
  Age: 56 Year
  Sex: Female

DRUGS (1)
  1. BETAFERON [Suspect]
     Indication: MULTIPLE SCLEROSIS
     Dosage: 250 ?g, QOD
     Route: 058
     Dates: start: 20030716

REACTIONS (3)
  - Pancreatic neuroendocrine tumour [None]
  - Radius fracture [None]
  - Ulna fracture [None]
